FAERS Safety Report 21389692 (Version 1)
Quarter: 2022Q3

REPORT INFORMATION
  Report Type: Spontaneous
  Country: AT (occurrence: AT)
  Receive Date: 20220929
  Receipt Date: 20220929
  Transmission Date: 20221026
  Serious: Yes (Other)
  Sender: FDA-Public Use
  Company Number: AT-ALK-ABELLO A/S-2022AA003097

PATIENT

DRUGS (1)
  1. ACARIZAX [Suspect]
     Active Substance: DERMATOPHAGOIDES FARINAE\DERMATOPHAGOIDES PTERONYSSINUS
     Indication: Product used for unknown indication
     Dosage: 12 SQ-HDM
     Route: 060
     Dates: start: 2022, end: 2022

REACTIONS (1)
  - Salmonellosis [Unknown]

NARRATIVE: CASE EVENT DATE: 20220101
